FAERS Safety Report 24179099 (Version 2)
Quarter: 2024Q3

REPORT INFORMATION
  Report Type: Spontaneous
  Country: US (occurrence: US)
  Receive Date: 20240806
  Receipt Date: 20240816
  Transmission Date: 20241017
  Serious: No
  Sender: AMGEN
  Company Number: US-AMGEN-USASP2024152381

PATIENT
  Sex: Female

DRUGS (1)
  1. PROLIA [Suspect]
     Active Substance: DENOSUMAB
     Indication: Rheumatoid arthritis
     Dosage: UNK
     Route: 065

REACTIONS (12)
  - Eye disorder [Unknown]
  - Lip disorder [Unknown]
  - Device physical property issue [Unknown]
  - Tooth disorder [Unknown]
  - Headache [Unknown]
  - Mobility decreased [Unknown]
  - Pain [Unknown]
  - Tooth infection [Unknown]
  - Blood calcium decreased [Unknown]
  - Off label use [Unknown]
  - Joint swelling [Unknown]
  - Eye swelling [Unknown]

NARRATIVE: CASE EVENT DATE: 20240701
